FAERS Safety Report 7590747-0 (Version None)
Quarter: 2011Q3

REPORT INFORMATION
  Report Type: 
  Country: None (occurrence: None)
  Receive Date: 20110705
  Receipt Date: 20110620
  Transmission Date: 20111222
  Serious: Yes (Hospitalization)
  Sender: FDA-Public Use
  Company Number: PHHO2011ES11265

PATIENT
  Age: 54 Year
  Sex: Female

DRUGS (4)
  1. AKINETON [Suspect]
     Indication: SCHIZOPHRENIA
     Dosage: 400 MG, DAILY
     Dates: start: 19960101, end: 20110201
  2. SOLIAN [Suspect]
     Indication: SCHIZOPHRENIA
     Dosage: 800 MG, DAILY
     Dates: start: 19960101, end: 20110201
  3. LORAZEPAM [Suspect]
     Indication: SCHIZOPHRENIA
     Dosage: 6 MG, DAY
     Dates: start: 19960101
  4. CLOZAPINE [Suspect]
     Indication: SCHIZOPHRENIA
     Dosage: 7.5 MG, DAILY
     Route: 048
     Dates: start: 19990101

REACTIONS (7)
  - METABOLIC ALKALOSIS [None]
  - SINUS TACHYCARDIA [None]
  - GASTROINTESTINAL HYPOMOTILITY [None]
  - ELECTROCARDIOGRAM T WAVE PEAKED [None]
  - ELECTROCARDIOGRAM ABNORMAL [None]
  - HYPOCHLORAEMIA [None]
  - ALKALOSIS HYPOKALAEMIC [None]
